FAERS Safety Report 7716830-4 (Version None)
Quarter: 2011Q3

REPORT INFORMATION
  Report Type: 
  Country: None (occurrence: None)
  Receive Date: 20110829
  Receipt Date: 20110824
  Transmission Date: 20111222
  Serious: Yes (Death)
  Sender: FDA-Public Use
  Company Number: GXKR2011DE02634

PATIENT
  Age: 76 Year
  Sex: Male
  Weight: 80 kg

DRUGS (5)
  1. METOCLOPRAMIDE HYDROCHLORIDE [Concomitant]
     Indication: NAUSEA
     Dosage: 20 GTT, TID
     Route: 048
     Dates: start: 20110213, end: 20110218
  2. NOVAMINSULFON-RATIOPHARM [Concomitant]
     Indication: TUMOUR PAIN
     Dosage: 20 GTT, TID
     Route: 048
     Dates: start: 20110213, end: 20110218
  3. OLICLINOMEL                             /SPA/ [Concomitant]
     Indication: DECREASED APPETITE
     Dosage: 1000 ML
     Route: 042
     Dates: start: 20110213, end: 20110217
  4. FENTANYL [Concomitant]
     Indication: TUMOUR PAIN
     Dosage: 25 UG
     Route: 062
     Dates: start: 20110213, end: 20110216
  5. MIRTAZAPINE [Suspect]
     Indication: DEPRESSION
     Dosage: 15 MG
     Route: 048
     Dates: start: 20110213, end: 20110216

REACTIONS (1)
  - STEVENS-JOHNSON SYNDROME [None]
